FAERS Safety Report 8536059-X (Version None)
Quarter: 2012Q3

REPORT INFORMATION
  Report Type: 
  Country: None (occurrence: None)
  Receive Date: 20120725
  Receipt Date: 20120720
  Transmission Date: 20120928
  Serious: Yes (Life-Threatening)
  Sender: FDA-Public Use
  Company Number: JP-BRISTOL-MYERS SQUIBB COMPANY-15950611

PATIENT
  Age: 76 Year
  Sex: Male
  Weight: 50 kg

DRUGS (18)
  1. KENTAN [Concomitant]
     Dosage: GRANULES
     Dates: start: 20110617, end: 20110804
  2. MILMAG [Concomitant]
     Dosage: ORAL SOLUTION
     Dates: start: 20110605, end: 20110803
  3. MIDAZOLAM [Concomitant]
     Dates: start: 20110627, end: 20110807
  4. METILON [Concomitant]
     Dates: start: 20110709, end: 20110809
  5. ALFACALCIDOL [Concomitant]
     Dosage: CALFINA TAB
     Dates: start: 20110607, end: 20110805
  6. THYROID TAB [Concomitant]
     Dosage: THYRADIN,TAB
     Dates: start: 20110622, end: 20110802
  7. MORPHINE HCL [Concomitant]
     Dosage: INJECTION
     Dates: start: 20110624, end: 20110804
  8. MAINTENANCE MEDIUM [Concomitant]
     Dosage: INJECTION SOLDEM
  9. KETALAR [Concomitant]
     Dosage: INJECTION
     Dates: start: 20110627, end: 20110809
  10. MUCODYNE [Concomitant]
     Dosage: SYRUP
     Dates: start: 20110607, end: 20110805
  11. LANSOPRAZOLE [Concomitant]
  12. ZOSYN [Concomitant]
     Route: 041
     Dates: start: 20110703, end: 20110726
  13. VITAMEDIN [Concomitant]
     Dosage: INJECTION
     Dates: start: 20110707, end: 20110805
  14. ABILIFY [Suspect]
     Indication: DELIRIUM
     Route: 048
     Dates: start: 20110719, end: 20110726
  15. LACTEC [Concomitant]
     Dosage: INJECTION
     Dates: start: 20110704, end: 20110809
  16. LAC-B [Concomitant]
     Dosage: ORAL POWDER
     Route: 048
  17. BETAMETHASONE [Concomitant]
     Dosage: SYRUP
     Dates: start: 20110524, end: 20110807
  18. ALPRAZOLAM [Concomitant]
     Dosage: TABLET
     Dates: start: 20110716, end: 20110804

REACTIONS (2)
  - GRANULOCYTOPENIA [None]
  - PANCYTOPENIA [None]
